FAERS Safety Report 8315153-2 (Version None)
Quarter: 2012Q2

REPORT INFORMATION
  Report Type: 
  Country: None (occurrence: None)
  Receive Date: 20120426
  Receipt Date: 20120405
  Transmission Date: 20120825
  Serious: Yes (Life-Threatening, Hospitalization, Other)
  Sender: FDA-Public Use
  Company Number: US-GLAXOSMITHKLINE-A0972768A

PATIENT
  Age: 18 Year
  Sex: Female
  Weight: 69.5 kg

DRUGS (4)
  1. ZITHROMAX [Suspect]
     Indication: PRODUCT USED FOR UNKNOWN INDICATION
     Dosage: 250MG PER DAY
     Route: 048
     Dates: start: 20120307, end: 20120310
  2. FLEXERIL [Concomitant]
     Indication: LIGAMENT SPRAIN
     Dosage: 10MG AS REQUIRED
     Route: 048
     Dates: start: 20120222
  3. LAMICTAL [Suspect]
     Indication: BIPOLAR DISORDER
     Route: 048
     Dates: start: 20120223, end: 20120308
  4. NAPROXEN [Suspect]
     Indication: LIGAMENT SPRAIN
     Dosage: 500MG AS REQUIRED
     Route: 048
     Dates: start: 20120222

REACTIONS (8)
  - PNEUMONIA [None]
  - RASH [None]
  - URINARY TRACT INFECTION [None]
  - RESPIRATORY DISORDER [None]
  - MOUTH ULCERATION [None]
  - RASH ERYTHEMATOUS [None]
  - TOXIC EPIDERMAL NECROLYSIS [None]
  - RASH PRURITIC [None]
